FAERS Safety Report 4726067-9 (Version None)
Quarter: 2005Q3

REPORT INFORMATION
  Report Type: 
  Country: None (occurrence: None)
  Receive Date: 20050726
  Receipt Date: 20050726
  Transmission Date: 20060218
  Serious: Yes (Hospitalization)
  Sender: FDA-Public Use
  Company Number: None

PATIENT
  Age: 49 Year
  Sex: Male
  Weight: 74.3899 kg

DRUGS (1)
  1. SALINE SOLUTION [Suspect]
     Indication: INFECTION PARASITIC
     Dosage: 15 TIMES+
     Dates: start: 20050602, end: 20050617

REACTIONS (1)
  - PSEUDOMONAS INFECTION [None]
